FAERS Safety Report 6233040-0 (Version None)
Quarter: 2009Q2

REPORT INFORMATION
  Report Type: 
  Country: None (occurrence: None)
  Receive Date: 20090612
  Receipt Date: 20090601
  Transmission Date: 20091009
  Serious: Yes (Other)
  Sender: FDA-Public Use
  Company Number: CHPA2009US13134

PATIENT
  Age: 18 Year
  Sex: Male

DRUGS (1)
  1. EXCEDRIN EXTRA STRENGTH        (CAFFEINE CITRATE, ACETYLSALICYLIC ACID [Suspect]
     Indication: SINUS HEADACHE
     Dosage: 1 DF, BID-TID, ORAL
     Route: 048
     Dates: start: 19680101

REACTIONS (2)
  - CHOLELITHIASIS [None]
  - INTENTIONAL DRUG MISUSE [None]
